FAERS Safety Report 7215167-X (Version None)
Quarter: 2011Q1

REPORT INFORMATION
  Report Type: 
  Country: None (occurrence: None)
  Receive Date: 20110107
  Receipt Date: 20100928
  Transmission Date: 20110831
  Serious: No
  Sender: FDA-Public Use
  Company Number: A0883781A

PATIENT
  Age: 58 Year
  Sex: Female

DRUGS (1)
  1. LOVAZA [Suspect]
     Dosage: 2CAP TWICE PER DAY
     Route: 048
     Dates: start: 20100908, end: 20100927

REACTIONS (5)
  - OROPHARYNGEAL PAIN [None]
  - THROAT TIGHTNESS [None]
  - ABDOMINAL PAIN UPPER [None]
  - DYSPHONIA [None]
  - INFLUENZA LIKE ILLNESS [None]
